FAERS Safety Report 23055543 (Version 1)
Quarter: 2023Q4

REPORT INFORMATION
  Report Type: Spontaneous
  Country: NL (occurrence: NL)
  Receive Date: 20231011
  Receipt Date: 20231011
  Transmission Date: 20240110
  Serious: Yes (Other)
  Sender: FDA-Public Use
  Company Number: None

PATIENT
  Age: 76 Year
  Sex: Female
  Weight: 67 kg

DRUGS (1)
  1. CIPROFLOXACIN [Suspect]
     Active Substance: CIPROFLOXACIN
     Indication: Urinary tract infection
     Dosage: 500 MILLIGRAM, BID (2X PER DAY 1 PIECE)
     Route: 065
     Dates: start: 20230828, end: 20230829

REACTIONS (2)
  - Cerebral amyloid angiopathy [Recovered/Resolved]
  - Condition aggravated [Recovered/Resolved]
